FAERS Safety Report 11626222 (Version 2)
Quarter: 2015Q4

REPORT INFORMATION
  Report Type: Spontaneous
  Country: CH (occurrence: CH)
  Receive Date: 20151013
  Receipt Date: 20151014
  Transmission Date: 20160304
  Serious: Yes (Other)
  Sender: FDA-Public Use
  Company Number: CH-ASTRAZENECA-2015SE96343

PATIENT
  Age: 0 Day
  Sex: Male
  Weight: 2 kg

DRUGS (2)
  1. SEROQUEL XR [Suspect]
     Active Substance: QUETIAPINE FUMARATE
     Indication: BIPOLAR DISORDER
     Route: 064
     Dates: start: 20140205
  2. SOLIAN [Suspect]
     Active Substance: AMISULPRIDE
     Indication: BIPOLAR DISORDER
     Dosage: EVERY DAY
     Route: 064
     Dates: start: 2013, end: 20140205

REACTIONS (4)
  - Premature baby [Recovered/Resolved]
  - Foetal monitoring abnormal [Unknown]
  - Neonatal respiratory distress syndrome [Recovered/Resolved]
  - Neonatal behavioural syndrome [Recovered/Resolved]

NARRATIVE: CASE EVENT DATE: 20140829
